FAERS Safety Report 19886134 (Version 2)
Quarter: 2021Q4

REPORT INFORMATION
  Report Type: Spontaneous
  Country: US (occurrence: US)
  Receive Date: 20210927
  Receipt Date: 20211005
  Transmission Date: 20220303
  Serious: Yes (Hospitalization)
  Sender: FDA-Public Use
  Company Number: US-AMNEAL PHARMACEUTICALS-2021-AMRX-03763

PATIENT
  Age: 61 Year
  Sex: Male

DRUGS (1)
  1. ADRENACLICK [Suspect]
     Active Substance: EPINEPHRINE
     Indication: Hypersensitivity
     Dosage: 0.3 MILLIGRAM AS NEEDED
     Route: 058
     Dates: start: 20210907

REACTIONS (2)
  - Device issue [Unknown]
  - Device leakage [Unknown]

NARRATIVE: CASE EVENT DATE: 20210907
